FAERS Safety Report 9007906 (Version 1)
Quarter: 2013Q1

REPORT INFORMATION
  Report Type: Spontaneous
  Country: US (occurrence: US)
  Receive Date: 20130111
  Receipt Date: 20130111
  Transmission Date: 20140127
  Serious: Yes (Other)
  Sender: FDA-Public Use
  Company Number: US-009507513-0907USA03787

PATIENT
  Age: 9 Year
  Sex: Male
  Weight: 29.48 kg

DRUGS (3)
  1. SINGULAIR [Suspect]
     Indication: MULTIPLE ALLERGIES
     Dosage: 5 MG, QD
     Route: 048
  2. SINGULAIR [Suspect]
     Indication: ASTHMA
  3. ZYRTEC [Concomitant]

REACTIONS (7)
  - Mood swings [Recovered/Resolved]
  - Anxiety [Recovered/Resolved]
  - Depression [Recovered/Resolved]
  - Obsessive-compulsive disorder [Recovering/Resolving]
  - Panic attack [Recovered/Resolved]
  - Psychomotor hyperactivity [Recovering/Resolving]
  - Tic [Recovering/Resolving]
